FAERS Safety Report 8876091 (Version 1)
Quarter: 2012Q4

REPORT INFORMATION
  Report Type: 
  Country: US (occurrence: US)
  Receive Date: 20121030
  Receipt Date: 20121030
  Transmission Date: 20130627
  Serious: No
  Sender: FDA-Public Use
  Company Number: US-B.I. PHARMACEUTICALS,INC./RIDGEFIELD-2012-BP-26617BP

PATIENT
  Age: 77 Year
  Sex: Male
  Weight: 79 kg

DRUGS (4)
  1. PRADAXA [Suspect]
     Indication: ATRIAL FIBRILLATION
     Dosage: 300 mg
     Route: 048
     Dates: start: 201202
  2. PROSCAR [Concomitant]
     Indication: PROSTATOMEGALY
     Dosage: 5 mg
     Route: 048
     Dates: start: 2006
  3. LISINOPRIL [Concomitant]
     Indication: HYPERTENSION
     Dosage: 40 mg
     Route: 048
     Dates: start: 2008
  4. ASACOL [Concomitant]
     Indication: COLITIS
     Dosage: 2400 mg
     Route: 048
     Dates: start: 2007

REACTIONS (1)
  - Musculoskeletal discomfort [Recovered/Resolved]
